FAERS Safety Report 4600509-1 (Version None)
Quarter: 2005Q1

REPORT INFORMATION
  Report Type: 
  Country: None (occurrence: None)
  Receive Date: 20050304
  Receipt Date: 20050115
  Transmission Date: 20050727
  Serious: Yes (Other)
  Sender: FDA-Public Use
  Company Number: 2004091361

PATIENT
  Age: 54 Year
  Sex: Male
  Weight: 94.3482 kg

DRUGS (4)
  1. BEXTRA [Suspect]
     Indication: RHEUMATOID ARTHRITIS
     Dosage: 10 MG (10 MG, 1 IN 1 D), ORAL
     Route: 048
     Dates: start: 20030101, end: 20041106
  2. ALLOPURINOL [Suspect]
     Indication: GOUT
     Dosage: 300 MG
  3. NAPROXEN [Suspect]
     Indication: RHEUMATOID ARTHRITIS
     Dosage: 500 MG, ORAL
     Route: 048
  4. HYDROCODONE BITARTRATE [Suspect]
     Indication: RHEUMATOID ARTHRITIS
     Dosage: 500 MG

REACTIONS (10)
  - ARTHRALGIA [None]
  - BLINDNESS [None]
  - BURNING SENSATION [None]
  - CARDIAC DISORDER [None]
  - CHEST DISCOMFORT [None]
  - CHEST PAIN [None]
  - DYSPNOEA [None]
  - ECONOMIC PROBLEM [None]
  - MOVEMENT DISORDER [None]
  - VISUAL DISTURBANCE [None]
